FAERS Safety Report 20201931 (Version 3)
Quarter: 2022Q1

REPORT INFORMATION
  Report Type: Report from Study
  Country: US (occurrence: US)
  Receive Date: 20211217
  Receipt Date: 20220314
  Transmission Date: 20220423
  Serious: Yes (Hospitalization, Other)
  Sender: FDA-Public Use
  Company Number: US-PFIZER INC-202101763611

PATIENT
  Age: 61 Year
  Sex: Male
  Weight: 72.562 kg

DRUGS (8)
  1. BRAFTOVI [Suspect]
     Active Substance: ENCORAFENIB
     Indication: Malignant melanoma
     Dosage: 450 MG, DAILY
     Route: 048
     Dates: start: 20211129, end: 20211206
  2. BRAFTOVI [Suspect]
     Active Substance: ENCORAFENIB
     Dosage: 450 MG, DAILY
     Route: 048
     Dates: start: 202201
  3. MEKTOVI [Suspect]
     Active Substance: BINIMETINIB
     Indication: Malignant melanoma
     Dosage: 45 MG, (15 MG, 3 TABLETS 2X/DAY)
     Route: 048
     Dates: start: 20211129, end: 20211206
  4. MEKTOVI [Suspect]
     Active Substance: BINIMETINIB
     Dosage: 45 MG, 2X/DAY
     Route: 048
     Dates: start: 202201
  5. PREDNISONE [Concomitant]
     Active Substance: PREDNISONE
     Dosage: UNK
  6. LEVOTHYROXINE [Concomitant]
     Active Substance: LEVOTHYROXINE
     Dosage: UNK
  7. HYDROCODONE BITARTRATE [Concomitant]
     Active Substance: HYDROCODONE BITARTRATE
     Dosage: UNK
  8. CANNABIS SATIVA SUBSP. INDICA TOP [Concomitant]
     Active Substance: CANNABIS SATIVA SUBSP. INDICA TOP
     Dosage: UNK

REACTIONS (10)
  - Liver disorder [Unknown]
  - Tremor [Unknown]
  - Myalgia [Unknown]
  - Bone pain [Unknown]
  - Nausea [Unknown]
  - Muscle spasms [Unknown]
  - Vision blurred [Unknown]
  - Lacrimation increased [Unknown]
  - Dyspnoea [Unknown]
  - Renal disorder [Unknown]

NARRATIVE: CASE EVENT DATE: 20211206
